FAERS Safety Report 8613832 (Version 4)
Quarter: 2012Q4

REPORT INFORMATION
  Report Type: 
  Country: US (occurrence: US)
  Receive Date: 20120614
  Receipt Date: 20120912
  Transmission Date: 20130627
  Serious: No
  Sender: FDA-Public Use
  Company Number: US-PFIZER INC-2012140351

PATIENT
  Age: 47 Year
  Sex: Female
  Weight: 124 kg

DRUGS (3)
  1. GENOTROPIN [Suspect]
     Indication: GROWTH HORMONE DEFICIENCY
     Dosage: 0.2 mg 1x/day (per day)
     Route: 058
     Dates: start: 20110906
  2. GENOTROPIN [Suspect]
     Indication: TURNER^S SYNDROME
  3. VICTOZA [Suspect]
     Dosage: UNK
     Route: 058

REACTIONS (4)
  - Irritable bowel syndrome [Not Recovered/Not Resolved]
  - Diarrhoea [Recovered/Resolved]
  - Insomnia [Unknown]
  - Fatigue [Unknown]
